FAERS Safety Report 7367220-8 (Version None)
Quarter: 2011Q1

REPORT INFORMATION
  Report Type: 
  Country: None (occurrence: None)
  Receive Date: 20110322
  Receipt Date: 20110311
  Transmission Date: 20110831
  Serious: Yes (Life-Threatening, Hospitalization, Other)
  Sender: FDA-Public Use
  Company Number: DE-PFIZER INC-2011007636

PATIENT
  Age: 67 Year
  Sex: Female

DRUGS (10)
  1. CORDAREX [Suspect]
     Indication: ATRIAL FIBRILLATION
     Dosage: 600 MG, 1X/DAY
     Route: 048
     Dates: start: 20101103, end: 20101109
  2. DELIX [Suspect]
     Dosage: 2.5 MG, 1X/DAY
     Dates: start: 20101118, end: 20101129
  3. IBUPROFEN [Suspect]
     Dosage: 400 MG, SINGLE
     Route: 048
     Dates: start: 20101103, end: 20101103
  4. AMLODIPINE BESYLATE [Suspect]
     Indication: HYPERTENSION
     Dosage: 5 MG, UNK
     Route: 048
     Dates: start: 20101103, end: 20101103
  5. AMLODIPINE BESYLATE [Suspect]
     Dosage: 5 MG, UNK
     Route: 048
     Dates: start: 20101105, end: 20101109
  6. DELIX [Suspect]
     Indication: PRODUCT USED FOR UNKNOWN INDICATION
     Dosage: 2.5 MG, 2X/DAY
     Route: 048
     Dates: start: 20101105, end: 20101109
  7. IBUPROFEN [Suspect]
     Indication: SPINAL OSTEOARTHRITIS
     Dosage: UNK
     Route: 048
     Dates: end: 20101102
  8. DICLOFENAC [Suspect]
     Indication: SPINAL OSTEOARTHRITIS
     Dosage: UNK
     Route: 048
     Dates: end: 20101102
  9. RAMIPRIL [Suspect]
     Dosage: UNK
     Route: 048
     Dates: start: 20101105
  10. RAMIPRIL [Suspect]
     Dosage: 2.5 MG, 2X/DAY
     Route: 048
     Dates: start: 20100923, end: 20101102

REACTIONS (2)
  - RENAL FAILURE ACUTE [None]
  - TUBULOINTERSTITIAL NEPHRITIS [None]
